FAERS Safety Report 16110769 (Version 4)
Quarter: 2021Q1

REPORT INFORMATION
  Report Type: Report from Study
  Country: AU (occurrence: AU)
  Receive Date: 20190325
  Receipt Date: 20210227
  Transmission Date: 20210419
  Serious: Yes (Hospitalization)
  Sender: FDA-Public Use
  Company Number: PHHO2019AU002977

PATIENT
  Age: 1 Year
  Sex: Female
  Weight: 15 kg

DRUGS (4)
  1. DABRAFENIB [Suspect]
     Active Substance: DABRAFENIB
     Indication: GLIOMA
     Dosage: 40 MG, BID
     Route: 048
     Dates: start: 20181219, end: 20190311
  2. TRAMETINIB [Suspect]
     Active Substance: TRAMETINIB
     Dosage: 1 MG, QD
     Route: 048
     Dates: start: 20190319
  3. TRAMETINIB [Suspect]
     Active Substance: TRAMETINIB
     Indication: GLIOMA
     Dosage: 1 MG, QD
     Route: 048
     Dates: start: 20181219, end: 20190311
  4. DABRAFENIB [Suspect]
     Active Substance: DABRAFENIB
     Dosage: 40 MG, BID
     Route: 048
     Dates: start: 20190319

REACTIONS (1)
  - Pyrexia [Recovered/Resolved]

NARRATIVE: CASE EVENT DATE: 20190311
